FAERS Safety Report 9277232 (Version 1)
Quarter: 2013Q2

REPORT INFORMATION
  Report Type: Spontaneous
  Country: GB (occurrence: GB)
  Receive Date: 20130508
  Receipt Date: 20130508
  Transmission Date: 20140414
  Serious: Yes (Other)
  Sender: FDA-Public Use
  Company Number: GB-009507513-1305GBR001869

PATIENT
  Sex: Male

DRUGS (3)
  1. DEXAMETHASONE [Suspect]
     Indication: METASTASES TO CENTRAL NERVOUS SYSTEM
  2. DEXAMETHASONE [Suspect]
     Indication: GRANULOMATOSIS WITH POLYANGIITIS
  3. YERVOY [Suspect]
     Indication: MALIGNANT MELANOMA

REACTIONS (3)
  - Syncope [Unknown]
  - Dyspnoea [Unknown]
  - Muscular weakness [Unknown]
